FAERS Safety Report 11715367 (Version 1)
Quarter: 2015Q4

REPORT INFORMATION
  Report Type: Spontaneous
  Country: ES (occurrence: ES)
  Receive Date: 20151109
  Receipt Date: 20151109
  Transmission Date: 20160304
  Serious: Yes (Hospitalization, Other)
  Sender: FDA-Public Use
  Company Number: ES-JNJFOC-20151104444

PATIENT
  Age: 45 Year
  Sex: Female

DRUGS (13)
  1. NORVIR [Interacting]
     Active Substance: RITONAVIR
     Indication: HIV INFECTION CDC CATEGORY B
     Route: 048
     Dates: start: 20140203, end: 20140203
  2. PARACETAMOL [Concomitant]
     Active Substance: ACETAMINOPHEN
     Route: 048
  3. DEXKETOPROFEN TROMETAMOL [Concomitant]
     Active Substance: DEXKETOPROFEN TROMETAMOL
     Route: 048
  4. TARDYFERON [Concomitant]
     Active Substance: FERROUS SULFATE\FOLIC ACID
     Route: 048
  5. SINTROM [Concomitant]
     Active Substance: ACENOCOUMAROL
     Indication: PORTAL VEIN THROMBOSIS
     Route: 048
  6. BOSENTAN [Concomitant]
     Active Substance: BOSENTAN
     Indication: PORTOPULMONARY HYPERTENSION
     Route: 048
     Dates: start: 20140318
  7. NORVIR [Interacting]
     Active Substance: RITONAVIR
     Indication: HIV INFECTION CDC CATEGORY B
     Route: 048
     Dates: start: 20140204, end: 20140318
  8. PREZISTA [Suspect]
     Active Substance: DARUNAVIR ETHANOLATE
     Indication: HIV INFECTION CDC CATEGORY B
     Route: 048
     Dates: start: 20140204, end: 20140318
  9. PREDNISONE. [Concomitant]
     Active Substance: PREDNISONE
     Route: 048
  10. REVATIO [Concomitant]
     Active Substance: SILDENAFIL CITRATE
     Indication: PORTOPULMONARY HYPERTENSION
     Route: 048
     Dates: start: 20140323
  11. SILDENAFIL. [Concomitant]
     Active Substance: SILDENAFIL
     Indication: PORTOPULMONARY HYPERTENSION
     Dosage: GIVEN FOR 10 DAYS
     Route: 048
     Dates: start: 20140323
  12. OMEPRAZOLE. [Concomitant]
     Active Substance: OMEPRAZOLE
     Route: 048
  13. TRIPTIZOL [Concomitant]
     Active Substance: AMITRIPTYLINE HYDROCHLORIDE
     Route: 048

REACTIONS (8)
  - Pyrexia [Recovered/Resolved]
  - Leukopenia [Recovered/Resolved]
  - Drug interaction [Recovered/Resolved]
  - Retroviral rebound syndrome [Recovered/Resolved]
  - Chest discomfort [Recovering/Resolving]
  - Lymphocytosis [Recovered/Resolved]
  - Dyspnoea [Recovering/Resolving]
  - Orthopnoea [Recovering/Resolving]

NARRATIVE: CASE EVENT DATE: 20140204
